FAERS Safety Report 5573341-2 (Version None)
Quarter: 2007Q4

REPORT INFORMATION
  Report Type: 
  Country: None (occurrence: None)
  Receive Date: 20071226
  Receipt Date: 20071218
  Transmission Date: 20080405
  Serious: Yes (Hospitalization)
  Sender: FDA-Public Use
  Company Number: PHBS2007CN21189

PATIENT
  Age: 39 Year
  Sex: Male

DRUGS (1)
  1. SEBIVO [Suspect]
     Indication: HEPATITIS B
     Dosage: 600 MG, QD
     Route: 048
     Dates: start: 20070823, end: 20071123

REACTIONS (3)
  - ABDOMINAL DISCOMFORT [None]
  - ABNORMAL FAECES [None]
  - ASCITES [None]
